FAERS Safety Report 19628040 (Version 1)
Quarter: 2021Q3

REPORT INFORMATION
  Report Type: Spontaneous
  Country: US (occurrence: US)
  Receive Date: 20210729
  Receipt Date: 20210729
  Transmission Date: 20211014
  Serious: Yes (Hospitalization)
  Sender: FDA-Public Use
  Company Number: None

PATIENT
  Age: 56 Year
  Sex: Female

DRUGS (10)
  1. ALEVE [Concomitant]
     Active Substance: NAPROXEN SODIUM
  2. ASPIRIN. [Concomitant]
     Active Substance: ASPIRIN
  3. VITAMIN C [Concomitant]
     Active Substance: ASCORBIC ACID
  4. GLUCOSAMINE [Concomitant]
     Active Substance: GLUCOSAMINE
  5. DIFLORASONE [Concomitant]
     Active Substance: DIFLORASONE DIACETATE
  6. FINASTERIDE. [Concomitant]
     Active Substance: FINASTERIDE
  7. HUMIRA [Suspect]
     Active Substance: ADALIMUMAB
     Indication: RHEUMATOID ARTHRITIS
     Route: 058
     Dates: start: 20181129
  8. VITAMIN D3 [Concomitant]
     Active Substance: CHOLECALCIFEROL
  9. COL ACE [Concomitant]
  10. DOCUSATE SOD [Concomitant]

REACTIONS (1)
  - Ligament rupture [None]

NARRATIVE: CASE EVENT DATE: 20210706
